FAERS Safety Report 6711355-7 (Version None)
Quarter: 2010Q2

REPORT INFORMATION
  Report Type: 
  Country: None (occurrence: None)
  Receive Date: 20100505
  Receipt Date: 20100429
  Transmission Date: 20101027
  Serious: Yes (Hospitalization)
  Sender: FDA-Public Use
  Company Number: GB-ELI_LILLY_AND_COMPANY-GB200911004556

PATIENT
  Sex: Female

DRUGS (4)
  1. PEMETREXED [Suspect]
     Indication: MESOTHELIOMA MALIGNANT
     Dosage: UNK, UNK
     Dates: start: 20091113
  2. CISPLATIN [Suspect]
     Indication: MESOTHELIOMA MALIGNANT
     Dosage: 111 MG, EVERY 3 WEEKS
     Route: 042
     Dates: start: 20091113
  3. METOCLOPRAMIDE HYDROCHLORIDE [Concomitant]
     Indication: ANTIEMETIC SUPPORTIVE CARE
     Dates: start: 20091113
  4. DEXAMETHASONE [Concomitant]
     Indication: STEROID THERAPY
     Dosage: 4 MG, UNK
     Dates: start: 20091113

REACTIONS (1)
  - PULMONARY EMBOLISM [None]
